FAERS Safety Report 9549487 (Version 1)
Quarter: 2013Q3

REPORT INFORMATION
  Report Type: Other
  Country: US (occurrence: US)
  Receive Date: 20130924
  Receipt Date: 20130924
  Transmission Date: 20140515
  Serious: Yes (Other)
  Sender: FDA-Public Use
  Company Number: US-BRISTOL-MYERS SQUIBB COMPANY-19387133

PATIENT
  Age: 81 Year
  Sex: Male

DRUGS (1)
  1. IPILIMUMAB [Suspect]
     Indication: METASTATIC MALIGNANT MELANOMA

REACTIONS (5)
  - Choroidal neovascularisation [Unknown]
  - Pruritus [Unknown]
  - Abdominal discomfort [Unknown]
  - Autoimmune thyroiditis [Unknown]
  - Vitiligo [Unknown]
